FAERS Safety Report 14505069 (Version 3)
Quarter: 2018Q2

REPORT INFORMATION
  Report Type: Report from Study
  Country: US (occurrence: US)
  Receive Date: 20180208
  Receipt Date: 20180402
  Transmission Date: 20180711
  Serious: Yes (Hospitalization)
  Sender: FDA-Public Use
  Company Number: US-BAYER-2018-014125

PATIENT
  Age: 65 Year
  Sex: Male

DRUGS (11)
  1. STIVARGA [Suspect]
     Active Substance: REGORAFENIB
     Indication: COLON CANCER
     Dosage: 160 MG, QD FOR 21 DAYS THEN 7 DAYS OFF
     Route: 048
     Dates: start: 20180122, end: 20180122
  2. LORATADINE. [Concomitant]
     Active Substance: LORATADINE
  3. METOPROLOL. [Concomitant]
     Active Substance: METOPROLOL
  4. LOVASTATIN. [Concomitant]
     Active Substance: LOVASTATIN
  5. LISINOPRIL. [Concomitant]
     Active Substance: LISINOPRIL
  6. NITROSTAT [Concomitant]
     Active Substance: NITROGLYCERIN
  7. FUROSEMIDE. [Concomitant]
     Active Substance: FUROSEMIDE
  8. ASPIRIN. [Concomitant]
     Active Substance: ASPIRIN
  9. STIVARGA [Suspect]
     Active Substance: REGORAFENIB
     Indication: COLON CANCER
     Dosage: 160 MG, QD (21 DAYS ON, THEN 7 DAYS OFF)
     Route: 048
     Dates: start: 20180101
  10. CLOPIDOGREL BISULFATE. [Concomitant]
     Active Substance: CLOPIDOGREL BISULFATE
  11. GABAPENTIN. [Concomitant]
     Active Substance: GABAPENTIN

REACTIONS (8)
  - Fall [Not Recovered/Not Resolved]
  - Hip fracture [Not Recovered/Not Resolved]
  - Upper limb fracture [Not Recovered/Not Resolved]
  - Head injury [Not Recovered/Not Resolved]
  - Fatigue [Not Recovered/Not Resolved]
  - Rib fracture [Not Recovered/Not Resolved]
  - Muscular weakness [Not Recovered/Not Resolved]
  - Concussion [Not Recovered/Not Resolved]

NARRATIVE: CASE EVENT DATE: 20180122
